FAERS Safety Report 5113923-5 (Version None)
Quarter: 2006Q3

REPORT INFORMATION
  Report Type: 
  Country: None (occurrence: None)
  Receive Date: 20060921
  Receipt Date: 20060914
  Transmission Date: 20061208
  Serious: Yes (Other)
  Sender: FDA-Public Use
  Company Number: HQWYE014128AUG05

PATIENT
  Age: 58 Year
  Sex: Male

DRUGS (13)
  1. ANCARON (AMIODARONE, TABLET) [Suspect]
     Indication: VENTRICULAR TACHYCARDIA
     Dosage: SEE IMAGE
     Route: 048
     Dates: start: 20060512, end: 20060701
  2. ANCARON (AMIODARONE, TABLET) [Suspect]
     Indication: VENTRICULAR TACHYCARDIA
     Dosage: SEE IMAGE
     Route: 048
     Dates: start: 20060801
  3. NITRO (GLYCERYL TRINITRATE) [Concomitant]
  4. LASIX [Concomitant]
  5. NICORANDIL (NICORANDIL) [Concomitant]
  6. BUFFERIN [Concomitant]
  7. ISOSORBIDE MONONITRATE [Concomitant]
  8. CARVEDILOL [Concomitant]
  9. LANIRAPID (METILDIGOXIN) [Concomitant]
  10. TAMSULOSIN HYDROCHLORIDE [Concomitant]
  11. BLOPRESS (CANDESARTAN CILEXETIL) [Concomitant]
  12. WARFARIN SODIUM [Concomitant]
  13. ALDACTONE [Concomitant]

REACTIONS (2)
  - OPTIC NERVE CUPPING [None]
  - VISUAL FIELD DEFECT [None]
